FAERS Safety Report 9798348 (Version 2)
Quarter: 2014Q1

REPORT INFORMATION
  Report Type: Spontaneous
  Country: US (occurrence: US)
  Receive Date: 20140106
  Receipt Date: 20140121
  Transmission Date: 20141002
  Serious: No
  Sender: FDA-Public Use
  Company Number: US-BAXTER-2013BAX053492

PATIENT
  Sex: Female

DRUGS (1)
  1. DIANEAL LOW CALCIUM [Suspect]
     Indication: PERITONEAL DIALYSIS
     Route: 033
     Dates: start: 201310

REACTIONS (3)
  - Dermatitis contact [Not Recovered/Not Resolved]
  - Rash [Recovering/Resolving]
  - Muscle spasms [Recovering/Resolving]
